FAERS Safety Report 6328668 (Version 3)
Quarter: 2019Q2

REPORT INFORMATION
  Report Type: Spontaneous
  Country: GB (occurrence: GB)
  Receive Date: 20070607
  Receipt Date: 20190521
  Transmission Date: 20190711
  Serious: Yes (Other)
  Sender: FDA-Public Use
  Company Number: GB-BAYER-200710616BNE

PATIENT
  Age: 14 Year
  Sex: Male

DRUGS (2)
  1. CIPROFLOXACIN. [Suspect]
     Active Substance: CIPROFLOXACIN
     Indication: URINARY TRACT INFECTION
     Route: 048
     Dates: start: 20060222, end: 20060224
  2. RANITIDINE. [Concomitant]
     Active Substance: RANITIDINE
     Dates: end: 20060216

REACTIONS (2)
  - Face oedema [Recovered/Resolved]
  - Vomiting [Recovered/Resolved]
